FAERS Safety Report 23553273 (Version 1)
Quarter: 2024Q1

REPORT INFORMATION
  Report Type: Report from Study
  Country: US (occurrence: US)
  Receive Date: 20240222
  Receipt Date: 20240222
  Transmission Date: 20240410
  Serious: Yes (Other)
  Sender: FDA-Public Use
  Company Number: US-TAKEDA-2021TUS051008

PATIENT
  Sex: Female
  Weight: 52 kg

DRUGS (11)
  1. HUMAN IMMUNOGLOBULIN G [Suspect]
     Active Substance: HUMAN IMMUNOGLOBULIN G
     Indication: Primary immunodeficiency syndrome
     Dosage: UNK
     Route: 058
  2. HUMAN IMMUNOGLOBULIN G [Suspect]
     Active Substance: HUMAN IMMUNOGLOBULIN G
     Dosage: 12 GRAM
     Route: 065
  3. HUMAN IMMUNOGLOBULIN G [Suspect]
     Active Substance: HUMAN IMMUNOGLOBULIN G
     Dosage: 14 GRAM, Q2WEEKS
     Route: 042
  4. HUMAN IMMUNOGLOBULIN G [Suspect]
     Active Substance: HUMAN IMMUNOGLOBULIN G
     Dosage: 14 GRAM, Q2WEEKS
     Route: 042
  5. TOPAMAX [Concomitant]
     Active Substance: TOPIRAMATE
     Indication: Epilepsy
     Dosage: UNK
     Route: 065
  6. PROLEAK [Concomitant]
     Indication: Osteoporosis
     Dosage: UNK
     Route: 065
  7. BUSPAR [Concomitant]
     Active Substance: BUSPIRONE HYDROCHLORIDE
     Indication: Anxiety
     Dosage: UNK
     Route: 065
  8. ACEBUTOLOL [Concomitant]
     Active Substance: ACEBUTOLOL
     Indication: Bladder spasm
     Dosage: UNK
     Route: 065
  9. MACRODANTIN [Concomitant]
     Active Substance: NITROFURANTOIN
     Indication: Urinary tract infection
     Dosage: UNK
     Route: 065
  10. BENADRYL [Concomitant]
     Active Substance: DIPHENHYDRAMINE HYDROCHLORIDE
     Dosage: UNK
     Route: 065
  11. ZOFRAN [Concomitant]
     Active Substance: ONDANSETRON HYDROCHLORIDE
     Dosage: UNK
     Route: 065

REACTIONS (7)
  - Pneumonia [Unknown]
  - Weight decreased [Not Recovered/Not Resolved]
  - Infusion site discharge [Not Recovered/Not Resolved]
  - Nasopharyngitis [Not Recovered/Not Resolved]
  - Vomiting [Unknown]
  - Pyrexia [Not Recovered/Not Resolved]
  - Infusion site swelling [Not Recovered/Not Resolved]
